FAERS Safety Report 8513157-8 (Version None)
Quarter: 2012Q3

REPORT INFORMATION
  Report Type: 
  Country: None (occurrence: None)
  Receive Date: 20120716
  Receipt Date: 20120701
  Transmission Date: 20120928
  Serious: Yes (Other)
  Sender: FDA-Public Use
  Company Number: US-ROCHE-1086171

PATIENT

DRUGS (7)
  1. TACROLIMUS [Suspect]
     Indication: IMMUNOSUPPRESSION
     Dosage: FIRST 3 MONTHS 14 NG/ML
  2. PREDNISONE [Suspect]
     Dosage: BY 2 YEARS POST TRANSPLANT
  3. TACROLIMUS [Suspect]
     Dosage: THEREAFTER ADJUSTED TO 8-12 NG/ML
  4. PREDNISONE [Suspect]
     Indication: IMMUNOSUPPRESSION
  5. VALCYTE [Suspect]
     Indication: ANTIVIRAL PROPHYLAXIS
     Route: 048
  6. CELLCEPT [Suspect]
     Indication: IMMUNOSUPPRESSION
     Route: 048
  7. BASILIXIMAB [Suspect]
     Indication: IMMUNOSUPPRESSION

REACTIONS (6)
  - VIRAL INFECTION [None]
  - CYTOMEGALOVIRUS INFECTION [None]
  - LEUKOPENIA [None]
  - FUNGAL INFECTION [None]
  - BACTERIAL INFECTION [None]
  - NEUROPATHY PERIPHERAL [None]
